FAERS Safety Report 6810799-2 (Version None)
Quarter: 2010Q2

REPORT INFORMATION
  Report Type: 
  Country: None (occurrence: None)
  Receive Date: 20100630
  Receipt Date: 20080514
  Transmission Date: 20101027
  Serious: No
  Sender: FDA-Public Use
  Company Number: US-PFIZER INC-2008025403

PATIENT
  Sex: Female
  Weight: 90.7 kg

DRUGS (5)
  1. NICOTROL [Suspect]
     Dates: start: 20071201
  2. CHANTIX [Suspect]
     Indication: SMOKING CESSATION THERAPY
     Dates: start: 20070101, end: 20070101
  3. LAMICTAL [Concomitant]
  4. CELEXA [Concomitant]
  5. DEXTROAMPHETAMINE SULFATE [Concomitant]

REACTIONS (2)
  - DRUG INEFFECTIVE [None]
  - STRESS [None]
